FAERS Safety Report 7078667-1 (Version None)
Quarter: 2010Q4

REPORT INFORMATION
  Report Type: 
  Country: None (occurrence: None)
  Receive Date: 20101101
  Receipt Date: 20101101
  Transmission Date: 20110411
  Serious: No
  Sender: FDA-Public Use
  Company Number: None

PATIENT
  Sex: Female
  Weight: 62.1428 kg

DRUGS (2)
  1. ZOCOR [Suspect]
     Dosage: 20 MG 1 A DAY
     Dates: start: 20090901
  2. VYTORIN [Suspect]
     Dosage: 10/20 MG 1 A DAY
     Dates: start: 20101001

REACTIONS (1)
  - PAIN IN EXTREMITY [None]
